FAERS Safety Report 6504853-2 (Version None)
Quarter: 2009Q4

REPORT INFORMATION
  Report Type: 
  Country: None (occurrence: None)
  Receive Date: 20091218
  Receipt Date: 20091209
  Transmission Date: 20100525
  Serious: Yes (Other)
  Sender: FDA-Public Use
  Company Number: US-JNJFOC-20091101976

PATIENT
  Sex: Female

DRUGS (2)
  1. REMICADE [Suspect]
     Indication: DRUG USE FOR UNKNOWN INDICATION
     Route: 042
  2. PREDNISONE [Concomitant]
     Indication: PREMEDICATION

REACTIONS (3)
  - EOSINOPHIL COUNT INCREASED [None]
  - OEDEMA MOUTH [None]
  - SINUSITIS FUNGAL [None]
